FAERS Safety Report 23593256 (Version 2)
Quarter: 2024Q2

REPORT INFORMATION
  Report Type: Spontaneous
  Country: US (occurrence: US)
  Receive Date: 20240304
  Receipt Date: 20240611
  Transmission Date: 20240716
  Serious: Yes (Other)
  Sender: FDA-Public Use
  Company Number: US-BRISTOL-MYERS SQUIBB COMPANY-2024-033775

PATIENT
  Age: 60 Year
  Sex: Female

DRUGS (2)
  1. OPDIVO [Suspect]
     Active Substance: NIVOLUMAB
     Indication: Lung neoplasm
     Dates: start: 2017
  2. YERVOY [Suspect]
     Active Substance: IPILIMUMAB
     Indication: Lung neoplasm
     Dates: start: 2017

REACTIONS (5)
  - Rotator cuff syndrome [Unknown]
  - Arthropathy [Unknown]
  - Malignant neoplasm progression [Unknown]
  - Hypoacusis [Unknown]
  - Tympanic membrane perforation [Unknown]

NARRATIVE: CASE EVENT DATE: 20210101
